FAERS Safety Report 18878937 (Version 17)
Quarter: 2023Q1

REPORT INFORMATION
  Report Type: Report from Study
  Country: CO (occurrence: CO)
  Receive Date: 20210211
  Receipt Date: 20230310
  Transmission Date: 20230418
  Serious: Yes (Other)
  Sender: FDA-Public Use
  Company Number: CO-TAKEDA-CO201917806

PATIENT
  Age: 5 Year
  Sex: Male
  Weight: 23.583 kg

DRUGS (5)
  1. IDURSULFASE [Suspect]
     Active Substance: IDURSULFASE
     Indication: Mucopolysaccharidosis II
     Dosage: 12 MILLIGRAM, 1/WEEK
     Route: 042
     Dates: start: 201808
  2. IDURSULFASE [Suspect]
     Active Substance: IDURSULFASE
     Dosage: 0.5 MILLIGRAM/KILOGRAM, 1/WEEK
     Route: 042
     Dates: start: 20180914
  3. IDURSULFASE [Suspect]
     Active Substance: IDURSULFASE
     Dosage: 12 MILLIGRAM, 1/WEEK
     Route: 042
     Dates: start: 20180914
  4. IDURSULFASE [Suspect]
     Active Substance: IDURSULFASE
     Dosage: 14 MILLIGRAM, 1/WEEK
     Route: 042
     Dates: start: 20180914
  5. RISPERIDONE [Concomitant]
     Active Substance: RISPERIDONE
     Indication: Product used for unknown indication
     Dosage: UNK
     Route: 065

REACTIONS (20)
  - Influenza [Recovering/Resolving]
  - Weight increased [Unknown]
  - Body height increased [Unknown]
  - Restlessness [Recovering/Resolving]
  - Inflammation [Recovering/Resolving]
  - Administration site extravasation [Recovering/Resolving]
  - Influenza like illness [Recovering/Resolving]
  - Nasal congestion [Recovering/Resolving]
  - Oropharyngeal plaque [Recovering/Resolving]
  - Malaise [Recovering/Resolving]
  - Gait disturbance [Unknown]
  - Limb injury [Unknown]
  - Pyrexia [Recovering/Resolving]
  - Cough [Recovering/Resolving]
  - Infusion related reaction [Recovering/Resolving]
  - Diarrhoea [Recovering/Resolving]
  - Rhinorrhoea [Recovering/Resolving]
  - Incorrect dose administered [Recovered/Resolved]
  - Inappropriate schedule of product administration [Recovering/Resolving]
  - Product dose omission issue [Unknown]

NARRATIVE: CASE EVENT DATE: 20190522
